FAERS Safety Report 21792995 (Version 1)
Quarter: 2022Q4

REPORT INFORMATION
  Report Type: Report from Study
  Country: US (occurrence: US)
  Receive Date: 20221229
  Receipt Date: 20221229
  Transmission Date: 20230112
  Serious: Yes (Death, Hospitalization, Other)
  Sender: FDA-Public Use
  Company Number: US-ORG100014127-2022001419

PATIENT
  Age: 36 Year
  Sex: Female

DRUGS (5)
  1. LYSODREN [Suspect]
     Active Substance: MITOTANE
     Indication: Adrenocortical carcinoma
     Dosage: UPTITRATED FROM 02 TAB DAILY FOR 01 WEEK TO 03 TAB DAILY FOR 01 WEEK TO 02 TAB TWICE A DAY
     Route: 048
     Dates: start: 20221102, end: 20221215
  2. Cymbalta Cap 60 mg [Concomitant]
     Indication: Product used for unknown indication
  3. Fyremadel 20 mcg SYR [Concomitant]
     Indication: Product used for unknown indication
  4. Menopur 75 IU SDV W/Q-Cap [Concomitant]
     Indication: Product used for unknown indication
  5. Novarel 5000 Unit MDV30 [Concomitant]
     Indication: Product used for unknown indication

REACTIONS (4)
  - Pancreatitis [Fatal]
  - Hypertriglyceridaemia [Fatal]
  - Respiratory syncytial virus infection [Recovering/Resolving]
  - Fatigue [Unknown]

NARRATIVE: CASE EVENT DATE: 20220101
